FAERS Safety Report 14539165 (Version 2)
Quarter: 2018Q4

REPORT INFORMATION
  Report Type: Report from Study
  Country: JP (occurrence: JP)
  Receive Date: 20180216
  Receipt Date: 20181029
  Transmission Date: 20190204
  Serious: Yes (Hospitalization)
  Sender: FDA-Public Use
  Company Number: JP-ASTELLAS-2016JP011924

PATIENT
  Sex: Female
  Weight: 46 kg

DRUGS (111)
  1. MEDICON                            /00048102/ [Concomitant]
     Active Substance: DEXTROMETHORPHAN HYDROBROMIDE
     Route: 048
     Dates: start: 201001
  2. MEDICON                            /00048102/ [Concomitant]
     Active Substance: DEXTROMETHORPHAN HYDROBROMIDE
     Route: 048
     Dates: start: 201005
  3. FIBLAST                            /00801901/ [Concomitant]
     Indication: SKIN ULCER
     Dosage: UNK UNK, UNKNOWN FREQ.
     Route: 061
  4. BUSCOPAN [Concomitant]
     Active Substance: BUTYLSCOPOLAMINE BROMIDE
     Indication: ABDOMINAL PAIN UPPER
     Dosage: UNK UNK, UNKNOWN FREQ.
     Route: 065
     Dates: start: 2010
  5. FEBURIC [Concomitant]
     Active Substance: FEBUXOSTAT
     Indication: NEPHROLITHIASIS
     Route: 048
     Dates: start: 20151015
  6. MEDROL [Suspect]
     Active Substance: METHYLPREDNISOLONE
     Route: 048
     Dates: start: 20110318, end: 20140904
  7. PANVITAN [Concomitant]
     Indication: PROPHYLAXIS
     Route: 048
  8. BONALON [Concomitant]
     Active Substance: ALENDRONATE SODIUM
     Indication: OSTEOPOROSIS
     Route: 048
     Dates: start: 20071110
  9. SELBEX [Concomitant]
     Active Substance: TEPRENONE
     Indication: ABDOMINAL PAIN UPPER
     Route: 048
     Dates: start: 20080926, end: 20130308
  10. BENET [Concomitant]
     Active Substance: RISEDRONATE SODIUM
     Indication: PRODUCT USED FOR UNKNOWN INDICATION
     Route: 048
     Dates: end: 20071109
  11. LOXONIN [Concomitant]
     Active Substance: LOXOPROFEN SODIUM
     Indication: HEADACHE
     Route: 048
     Dates: start: 2008
  12. LOXONIN [Concomitant]
     Active Substance: LOXOPROFEN SODIUM
     Indication: SYNOVIAL CYST
     Route: 048
  13. LOXONIN [Concomitant]
     Active Substance: LOXOPROFEN SODIUM
     Route: 048
     Dates: start: 20110209
  14. PL [Concomitant]
     Active Substance: ACETAMINOPHEN\CAFFEINE\PROMETHAZINE\SALICYLAMIDE
     Route: 048
     Dates: start: 200904
  15. PL [Concomitant]
     Active Substance: ACETAMINOPHEN\CAFFEINE\PROMETHAZINE\SALICYLAMIDE
     Route: 048
     Dates: start: 201005
  16. TALION                             /01587402/ [Concomitant]
     Active Substance: BEPOTASTINE BESILATE
     Route: 048
     Dates: start: 2008
  17. TALION                             /01587402/ [Concomitant]
     Active Substance: BEPOTASTINE BESILATE
     Route: 048
     Dates: start: 200904
  18. TALION                             /01587402/ [Concomitant]
     Active Substance: BEPOTASTINE BESILATE
     Route: 048
     Dates: start: 200910
  19. MEDICON                            /00048102/ [Concomitant]
     Active Substance: DEXTROMETHORPHAN HYDROBROMIDE
     Indication: UPPER RESPIRATORY TRACT INFLAMMATION
     Route: 048
     Dates: start: 2008
  20. MEDICON                            /00048102/ [Concomitant]
     Active Substance: DEXTROMETHORPHAN HYDROBROMIDE
     Route: 048
     Dates: start: 200901
  21. MEDICON                            /00048102/ [Concomitant]
     Active Substance: DEXTROMETHORPHAN HYDROBROMIDE
     Route: 048
     Dates: start: 200910
  22. CEFZON [Concomitant]
     Active Substance: CEFDINIR
     Route: 048
     Dates: start: 2009
  23. TACROLIMUS. [Suspect]
     Active Substance: TACROLIMUS
     Indication: LUPUS NEPHRITIS
     Route: 048
     Dates: start: 20070822, end: 20080525
  24. EPADEL-S [Concomitant]
     Active Substance: ICOSAPENT ETHYL
     Indication: PROPHYLAXIS
     Route: 048
     Dates: end: 20080707
  25. PL [Concomitant]
     Active Substance: ACETAMINOPHEN\CAFFEINE\PROMETHAZINE\SALICYLAMIDE
     Route: 048
     Dates: start: 200910
  26. TALION                             /01587402/ [Concomitant]
     Active Substance: BEPOTASTINE BESILATE
     Indication: UPPER RESPIRATORY TRACT INFLAMMATION
     Route: 048
     Dates: start: 200709
  27. TALION                             /01587402/ [Concomitant]
     Active Substance: BEPOTASTINE BESILATE
     Route: 048
     Dates: start: 201005
  28. MEDICON                            /00048102/ [Concomitant]
     Active Substance: DEXTROMETHORPHAN HYDROBROMIDE
     Route: 048
     Dates: start: 200812
  29. MEDICON                            /00048102/ [Concomitant]
     Active Substance: DEXTROMETHORPHAN HYDROBROMIDE
     Route: 048
     Dates: start: 2009
  30. CEFZON [Concomitant]
     Active Substance: CEFDINIR
     Indication: UPPER RESPIRATORY TRACT INFLAMMATION
     Route: 048
     Dates: start: 2008
  31. CEFZON [Concomitant]
     Active Substance: CEFDINIR
     Route: 048
     Dates: start: 201001
  32. GENTACIN [Concomitant]
     Active Substance: GENTAMICIN SULFATE
     Indication: SKIN ULCER
     Dosage: UNK UNK, UNKNOWN FREQ.
     Route: 065
  33. TACROLIMUS. [Suspect]
     Active Substance: TACROLIMUS
     Route: 048
     Dates: start: 20080526
  34. MEDROL [Suspect]
     Active Substance: METHYLPREDNISOLONE
     Route: 048
     Dates: start: 20070915, end: 20071012
  35. MEDROL [Suspect]
     Active Substance: METHYLPREDNISOLONE
     Route: 048
     Dates: start: 20081220, end: 20100824
  36. NU-LOTAN [Concomitant]
     Active Substance: LOSARTAN POTASSIUM
     Indication: HYPERTENSION
     Route: 048
     Dates: start: 20070818
  37. EPADEL-S [Concomitant]
     Active Substance: ICOSAPENT ETHYL
     Route: 048
     Dates: start: 20080708
  38. TAKEPRON [Concomitant]
     Active Substance: LANSOPRAZOLE
     Route: 048
     Dates: start: 20150417
  39. PL [Concomitant]
     Active Substance: ACETAMINOPHEN\CAFFEINE\PROMETHAZINE\SALICYLAMIDE
     Indication: UPPER RESPIRATORY TRACT INFLAMMATION
     Route: 048
     Dates: start: 200709
  40. TALION                             /01587402/ [Concomitant]
     Active Substance: BEPOTASTINE BESILATE
     Route: 048
     Dates: start: 2009
  41. ISODINE [Concomitant]
     Active Substance: POVIDONE-IODINE
     Indication: UPPER RESPIRATORY TRACT INFLAMMATION
     Dosage: UNK UNK, UNKNOWN FREQ.
     Route: 061
     Dates: start: 200709
  42. ASTOMIN [Concomitant]
     Active Substance: DIMEMORFAN
     Indication: PHARYNGITIS
     Route: 048
     Dates: start: 200904
  43. ZOVIRAX [Concomitant]
     Active Substance: ACYCLOVIR
     Indication: HERPES ZOSTER
     Dosage: UNK UNK, UNKNOWN FREQ.
     Route: 065
  44. MEDROL [Suspect]
     Active Substance: METHYLPREDNISOLONE
     Indication: LUPUS NEPHRITIS
     Route: 048
     Dates: end: 20070824
  45. PL [Concomitant]
     Active Substance: ACETAMINOPHEN\CAFFEINE\PROMETHAZINE\SALICYLAMIDE
     Route: 048
     Dates: start: 2008
  46. PL [Concomitant]
     Active Substance: ACETAMINOPHEN\CAFFEINE\PROMETHAZINE\SALICYLAMIDE
     Route: 048
     Dates: start: 2009
  47. TALION                             /01587402/ [Concomitant]
     Active Substance: BEPOTASTINE BESILATE
     Route: 048
     Dates: start: 200909
  48. TALION                             /01587402/ [Concomitant]
     Active Substance: BEPOTASTINE BESILATE
     Route: 048
     Dates: start: 2011, end: 2011
  49. CEFZON [Concomitant]
     Active Substance: CEFDINIR
     Route: 048
     Dates: start: 200812
  50. CEFZON [Concomitant]
     Active Substance: CEFDINIR
     Route: 048
     Dates: start: 200901
  51. CEFZON [Concomitant]
     Active Substance: CEFDINIR
     Route: 048
     Dates: start: 200904
  52. CEFZON [Concomitant]
     Active Substance: CEFDINIR
     Route: 048
     Dates: start: 201005
  53. STROCAIN                           /00130301/ [Concomitant]
     Indication: ABDOMINAL PAIN UPPER
     Route: 048
     Dates: start: 2008
  54. CIPROXAN                           /00697202/ [Concomitant]
     Active Substance: CIPROFLOXACIN
     Indication: GASTROENTERITIS
     Route: 065
     Dates: start: 2010
  55. CRAVIT [Concomitant]
     Active Substance: LEVOFLOXACIN
     Indication: PHARYNGITIS
     Route: 065
     Dates: start: 2011
  56. ADOAIR [Concomitant]
     Active Substance: FLUTICASONE PROPIONATE\SALMETEROL XINAFOATE
     Indication: COUGH
     Dosage: UNK UNK, UNKNOWN FREQ.
     Route: 065
     Dates: start: 2010
  57. MEDROL [Suspect]
     Active Substance: METHYLPREDNISOLONE
     Route: 048
     Dates: start: 20070915, end: 20071012
  58. MEDROL [Suspect]
     Active Substance: METHYLPREDNISOLONE
     Route: 048
     Dates: start: 20100825, end: 20110303
  59. GASTER [Concomitant]
     Active Substance: FAMOTIDINE
     Indication: PROPHYLAXIS
     Route: 048
     Dates: end: 20100330
  60. BAYASPIRIN [Concomitant]
     Active Substance: ASPIRIN
     Indication: PROPHYLAXIS
     Route: 048
  61. LOXONIN [Concomitant]
     Active Substance: LOXOPROFEN SODIUM
     Indication: MENISCUS INJURY
     Route: 048
     Dates: start: 2009
  62. PL [Concomitant]
     Active Substance: ACETAMINOPHEN\CAFFEINE\PROMETHAZINE\SALICYLAMIDE
     Route: 048
     Dates: start: 200901
  63. PL [Concomitant]
     Active Substance: ACETAMINOPHEN\CAFFEINE\PROMETHAZINE\SALICYLAMIDE
     Route: 048
     Dates: start: 200909
  64. PL [Concomitant]
     Active Substance: ACETAMINOPHEN\CAFFEINE\PROMETHAZINE\SALICYLAMIDE
     Route: 048
     Dates: start: 200911
  65. PL [Concomitant]
     Active Substance: ACETAMINOPHEN\CAFFEINE\PROMETHAZINE\SALICYLAMIDE
     Route: 048
     Dates: start: 2011, end: 2011
  66. TALION                             /01587402/ [Concomitant]
     Active Substance: BEPOTASTINE BESILATE
     Route: 048
     Dates: start: 200812
  67. TALION                             /01587402/ [Concomitant]
     Active Substance: BEPOTASTINE BESILATE
     Route: 048
     Dates: start: 2010
  68. CEFZON [Concomitant]
     Active Substance: CEFDINIR
     Indication: PHARYNGITIS
     Route: 048
     Dates: start: 2008
  69. CEFZON [Concomitant]
     Active Substance: CEFDINIR
     Route: 048
     Dates: start: 200910
  70. CEFZON [Concomitant]
     Active Substance: CEFDINIR
     Route: 048
     Dates: start: 200911
  71. METHYCOBAL [Concomitant]
     Active Substance: METHYLCOBALAMIN
     Indication: NEUROPATHY PERIPHERAL
     Route: 065
     Dates: start: 2010
  72. METHYCOBAL [Concomitant]
     Active Substance: METHYLCOBALAMIN
     Indication: HEADACHE
     Route: 065
     Dates: start: 20110209
  73. FERROMIA [Concomitant]
     Active Substance: SODIUM FERROUS CITRATE
     Indication: IRON DEFICIENCY ANAEMIA
     Route: 048
     Dates: start: 20120113
  74. MEDROL [Suspect]
     Active Substance: METHYLPREDNISOLONE
     Route: 048
     Dates: start: 20071013, end: 20081219
  75. ENDOXAN                            /00021101/ [Concomitant]
     Active Substance: CYCLOPHOSPHAMIDE
     Indication: LUPUS NEPHRITIS
     Route: 065
     Dates: start: 20070921, end: 20070921
  76. ALFAROL [Concomitant]
     Active Substance: ALFACALCIDOL
     Indication: OSTEOPOROSIS
     Dosage: 0.5 ?G, ONCE DAILY
     Route: 048
     Dates: end: 20111202
  77. BONALON [Concomitant]
     Active Substance: ALENDRONATE SODIUM
     Route: 048
     Dates: start: 20100825, end: 20111026
  78. LOXONIN [Concomitant]
     Active Substance: LOXOPROFEN SODIUM
     Indication: OSTEOARTHRITIS
     Route: 048
     Dates: start: 200901
  79. PL [Concomitant]
     Active Substance: ACETAMINOPHEN\CAFFEINE\PROMETHAZINE\SALICYLAMIDE
     Indication: PHARYNGITIS
     Route: 048
     Dates: start: 2008
  80. PL [Concomitant]
     Active Substance: ACETAMINOPHEN\CAFFEINE\PROMETHAZINE\SALICYLAMIDE
     Route: 048
     Dates: start: 201001
  81. TALION                             /01587402/ [Concomitant]
     Active Substance: BEPOTASTINE BESILATE
     Indication: PHARYNGITIS
     Route: 048
     Dates: start: 2008
  82. TALION                             /01587402/ [Concomitant]
     Active Substance: BEPOTASTINE BESILATE
     Route: 048
     Dates: start: 200901
  83. MEDICON                            /00048102/ [Concomitant]
     Active Substance: DEXTROMETHORPHAN HYDROBROMIDE
     Route: 048
     Dates: start: 200911
  84. MEDICON                            /00048102/ [Concomitant]
     Active Substance: DEXTROMETHORPHAN HYDROBROMIDE
     Route: 048
     Dates: start: 2010
  85. MEDICON                            /00048102/ [Concomitant]
     Active Substance: DEXTROMETHORPHAN HYDROBROMIDE
     Route: 048
     Dates: start: 2011
  86. BIOFERMIN R [Concomitant]
     Active Substance: BACILLUS SUBTILIS\LACTOBACILLUS ACIDOPHILUS\STREPTOCOCCUS FAECAIS
     Indication: GASTROENTERITIS
     Route: 048
     Dates: start: 2010
  87. BIO-THREE [Concomitant]
     Active Substance: HERBALS
     Indication: PRODUCT USED FOR UNKNOWN INDICATION
     Route: 048
     Dates: start: 20140502
  88. FEBURIC [Concomitant]
     Active Substance: FEBUXOSTAT
     Indication: HYPERURICAEMIA
  89. MEDROL [Suspect]
     Active Substance: METHYLPREDNISOLONE
     Route: 048
     Dates: start: 20070825, end: 20070914
  90. MEDROL [Suspect]
     Active Substance: METHYLPREDNISOLONE
     Route: 048
     Dates: start: 20110304, end: 20110317
  91. MEDROL [Suspect]
     Active Substance: METHYLPREDNISOLONE
     Route: 048
     Dates: start: 20140905, end: 20151221
  92. MEDROL [Suspect]
     Active Substance: METHYLPREDNISOLONE
     Route: 048
     Dates: start: 20151222
  93. PERSANTIN [Concomitant]
     Active Substance: DIPYRIDAMOLE
     Indication: PROPHYLAXIS
     Route: 048
     Dates: end: 20090804
  94. LOXONIN [Concomitant]
     Active Substance: LOXOPROFEN SODIUM
     Indication: UPPER RESPIRATORY TRACT INFLAMMATION
     Route: 048
     Dates: start: 200709
  95. LOXONIN [Concomitant]
     Active Substance: LOXOPROFEN SODIUM
     Indication: ABDOMINAL PAIN UPPER
     Route: 048
     Dates: start: 2008
  96. PL [Concomitant]
     Active Substance: ACETAMINOPHEN\CAFFEINE\PROMETHAZINE\SALICYLAMIDE
     Route: 048
     Dates: start: 200812
  97. PL [Concomitant]
     Active Substance: ACETAMINOPHEN\CAFFEINE\PROMETHAZINE\SALICYLAMIDE
     Route: 048
     Dates: start: 2010
  98. TALION                             /01587402/ [Concomitant]
     Active Substance: BEPOTASTINE BESILATE
     Route: 048
     Dates: start: 200911
  99. MEDICON                            /00048102/ [Concomitant]
     Active Substance: DEXTROMETHORPHAN HYDROBROMIDE
     Route: 048
     Dates: start: 200909
  100. CEFZON [Concomitant]
     Active Substance: CEFDINIR
     Route: 048
     Dates: start: 200909
  101. CEFZON [Concomitant]
     Active Substance: CEFDINIR
     Route: 048
     Dates: start: 2010
  102. STROCAIN                           /00130301/ [Concomitant]
     Route: 048
     Dates: start: 2010
  103. U-PASTA [Concomitant]
     Indication: INFECTED SKIN ULCER
     Dosage: UNK UNK, UNKNOWN FREQ.
     Route: 061
     Dates: start: 2010
  104. MEDROL [Suspect]
     Active Substance: METHYLPREDNISOLONE
     Route: 048
     Dates: start: 20110304, end: 20110317
  105. ENDOXAN                            /00021101/ [Concomitant]
     Active Substance: CYCLOPHOSPHAMIDE
     Route: 065
     Dates: start: 20071121, end: 20071121
  106. BONALON [Concomitant]
     Active Substance: ALENDRONATE SODIUM
     Route: 048
     Dates: end: 20100331
  107. GLAKAY [Concomitant]
     Active Substance: MENATETRENONE
     Indication: OSTEOPOROSIS
     Route: 048
     Dates: start: 20080714, end: 20130308
  108. SELBEX [Concomitant]
     Active Substance: TEPRENONE
     Route: 048
     Dates: start: 20140110
  109. TAKEPRON [Concomitant]
     Active Substance: LANSOPRAZOLE
     Indication: PROPHYLAXIS
     Route: 048
     Dates: start: 20100331, end: 20150416
  110. TALION                             /01587402/ [Concomitant]
     Active Substance: BEPOTASTINE BESILATE
     Route: 048
     Dates: start: 201001
  111. MEDICON                            /00048102/ [Concomitant]
     Active Substance: DEXTROMETHORPHAN HYDROBROMIDE
     Indication: PHARYNGITIS
     Route: 048
     Dates: start: 2008

REACTIONS (5)
  - Hyperuricaemia [Recovering/Resolving]
  - Herpes zoster [Recovering/Resolving]
  - Iron deficiency anaemia [Recovering/Resolving]
  - Osteonecrosis [Recovering/Resolving]
  - Focal nodular hyperplasia [Not Recovered/Not Resolved]

NARRATIVE: CASE EVENT DATE: 20071228
